FAERS Safety Report 12632062 (Version 2)
Quarter: 2016Q3

REPORT INFORMATION
  Report Type: Spontaneous
  Country: US (occurrence: US)
  Receive Date: 20160808
  Receipt Date: 20160808
  Transmission Date: 20161109
  Serious: No
  Sender: FDA-Public Use
  Company Number: US-BEH-2016061826

PATIENT
  Age: 53 Year
  Sex: Female
  Weight: 95 kg

DRUGS (27)
  1. AUGMENTIN [Concomitant]
     Active Substance: AMOXICILLIN\CLAVULANATE POTASSIUM
  2. PROTONIX [Concomitant]
     Active Substance: PANTOPRAZOLE SODIUM
  3. SPIRIVA [Concomitant]
     Active Substance: TIOTROPIUM BROMIDE MONOHYDRATE
  4. XOLAIR [Concomitant]
     Active Substance: OMALIZUMAB
  5. LISINOPRIL. [Concomitant]
     Active Substance: LISINOPRIL
  6. CALCIUM + D [Concomitant]
     Active Substance: CALCIUM\VITAMIN D
  7. DIPHENHYDRAMINE. [Concomitant]
     Active Substance: DIPHENHYDRAMINE
  8. PAXIL [Concomitant]
     Active Substance: PAROXETINE HYDROCHLORIDE
  9. DULERA [Concomitant]
     Active Substance: FORMOTEROL FUMARATE DIHYDRATE\MOMETASONE FUROATE
  10. CEFDINIR. [Concomitant]
     Active Substance: CEFDINIR
  11. LASIX [Concomitant]
     Active Substance: FUROSEMIDE
  12. FLUTICASONE [Concomitant]
     Active Substance: FLUTICASONE\FLUTICASONE PROPIONATE
  13. EPIPEN [Concomitant]
     Active Substance: EPINEPHRINE
  14. ALVESCO [Concomitant]
     Active Substance: CICLESONIDE
  15. CLOTRIMAZOLE. [Concomitant]
     Active Substance: CLOTRIMAZOLE
  16. LMX [Concomitant]
     Active Substance: LIDOCAINE
  17. SINGULAIR [Concomitant]
     Active Substance: MONTELUKAST SODIUM
  18. CLARINEX [Concomitant]
     Active Substance: DESLORATADINE
  19. PROAIR HFA [Concomitant]
     Active Substance: ALBUTEROL SULFATE
  20. CEFTRIAXONE. [Concomitant]
     Active Substance: CEFTRIAXONE
  21. PREDNISONE. [Concomitant]
     Active Substance: PREDNISONE
  22. NITROSTAT [Concomitant]
     Active Substance: NITROGLYCERIN
  23. METOPROLOL. [Concomitant]
     Active Substance: METOPROLOL
  24. ASPIRIN. [Concomitant]
     Active Substance: ASPIRIN
  25. HIZENTRA [Suspect]
     Active Substance: HUMAN IMMUNOGLOBULIN G
     Indication: IMMUNODEFICIENCY COMMON VARIABLE
     Route: 058
  26. HIZENTRA [Suspect]
     Active Substance: HUMAN IMMUNOGLOBULIN G
     Indication: IMMUNODEFICIENCY
     Route: 058
  27. METFORMIN [Concomitant]
     Active Substance: METFORMIN HYDROCHLORIDE

REACTIONS (1)
  - Sinusitis [Unknown]

NARRATIVE: CASE EVENT DATE: 20160205
